FAERS Safety Report 17091504 (Version 1)
Quarter: 2019Q4

REPORT INFORMATION
  Report Type: Spontaneous
  Country: US (occurrence: US)
  Receive Date: 20191129
  Receipt Date: 20191129
  Transmission Date: 20200122
  Serious: No
  Sender: FDA-Public Use
  Company Number: US-009507513-1911USA009779

PATIENT
  Age: 73 Year
  Sex: Female

DRUGS (2)
  1. PROVENTIL [Suspect]
     Active Substance: ALBUTEROL
     Dosage: AS NEEDED
     Dates: start: 2018
  2. PROVENTIL [Suspect]
     Active Substance: ALBUTEROL
     Indication: CHRONIC OBSTRUCTIVE PULMONARY DISEASE
     Dosage: AS NEEDED
     Dates: start: 2019

REACTIONS (4)
  - Product quality issue [Unknown]
  - Product dose omission [Unknown]
  - Product use in unapproved indication [Unknown]
  - Poor quality device used [Unknown]

NARRATIVE: CASE EVENT DATE: 2018
